FAERS Safety Report 15369209 (Version 2)
Quarter: 2019Q2

REPORT INFORMATION
  Report Type: Spontaneous
  Country: US (occurrence: US)
  Receive Date: 20180911
  Receipt Date: 20190508
  Transmission Date: 20190711
  Serious: Yes (Other)
  Sender: FDA-Public Use
  Company Number: US-HORIZON-VIM-0446-2018

PATIENT
  Age: 73 Year
  Sex: Male

DRUGS (49)
  1. PREVACID [Suspect]
     Active Substance: LANSOPRAZOLE
     Route: 065
     Dates: start: 2002, end: 2015
  2. PROTONIX [Suspect]
     Active Substance: PANTOPRAZOLE SODIUM
     Route: 065
     Dates: start: 2002, end: 2015
  3. CARDURA [Concomitant]
     Active Substance: DOXAZOSIN MESYLATE
  4. NAPROXEN. [Concomitant]
     Active Substance: NAPROXEN
  5. LOSARTAN. [Concomitant]
     Active Substance: LOSARTAN
  6. SUCRALFATE. [Concomitant]
     Active Substance: SUCRALFATE
  7. DEXILANT [Suspect]
     Active Substance: DEXLANSOPRAZOLE
     Route: 065
     Dates: start: 2002, end: 2015
  8. NEXIUM 24HR [Suspect]
     Active Substance: ESOMEPRAZOLE MAGNESIUM
     Route: 048
     Dates: start: 2002, end: 2015
  9. PRILOSEC OTC [Suspect]
     Active Substance: OMEPRAZOLE MAGNESIUM
     Route: 048
     Dates: start: 2002, end: 2015
  10. PREVACID 24 HR [Suspect]
     Active Substance: LANSOPRAZOLE
     Route: 065
     Dates: start: 2002, end: 2015
  11. PROTONIX [Suspect]
     Active Substance: PANTOPRAZOLE SODIUM
     Route: 065
     Dates: start: 2003, end: 2016
  12. CARVEDILOL. [Concomitant]
     Active Substance: CARVEDILOL
  13. SIMVASTATIN. [Concomitant]
     Active Substance: SIMVASTATIN
  14. DICLOFENAC [Concomitant]
     Active Substance: DICLOFENAC
  15. DIGOXIN. [Concomitant]
     Active Substance: DIGOXIN
  16. CYCLOBENZAPRINE. [Concomitant]
     Active Substance: CYCLOBENZAPRINE
  17. PRILOSEC [Suspect]
     Active Substance: OMEPRAZOLE MAGNESIUM
     Route: 048
     Dates: start: 2002, end: 2015
  18. CYCLOBENZAPRINE. [Concomitant]
     Active Substance: CYCLOBENZAPRINE
  19. METFORMIN [Concomitant]
     Active Substance: METFORMIN HYDROCHLORIDE
  20. PALGIC [Concomitant]
     Active Substance: CARBINOXAMINE MALEATE
  21. NEXIUM [Suspect]
     Active Substance: ESOMEPRAZOLE MAGNESIUM
     Route: 048
     Dates: start: 2002, end: 2015
  22. ASPIRIN. [Concomitant]
     Active Substance: ASPIRIN
  23. LASIX [Concomitant]
     Active Substance: FUROSEMIDE
  24. TRAMADOL. [Concomitant]
     Active Substance: TRAMADOL
  25. LISINOPRIL. [Concomitant]
     Active Substance: LISINOPRIL
  26. PREDNISONE. [Concomitant]
     Active Substance: PREDNISONE
  27. FUROSEMIDE. [Concomitant]
     Active Substance: FUROSEMIDE
  28. CARVEDILOL. [Concomitant]
     Active Substance: CARVEDILOL
  29. MAGNESIUM OXIDE. [Concomitant]
     Active Substance: MAGNESIUM OXIDE
  30. VIMOVO [Suspect]
     Active Substance: ESOMEPRAZOLE MAGNESIUM\NAPROXEN
     Indication: PRODUCT USED FOR UNKNOWN INDICATION
     Route: 048
     Dates: start: 2002, end: 2015
  31. NEXIUM [Suspect]
     Active Substance: ESOMEPRAZOLE MAGNESIUM
     Route: 065
     Dates: start: 20030822, end: 20160210
  32. MULTIVITAMIN [Concomitant]
     Active Substance: VITAMINS
  33. SUCRALFATE. [Concomitant]
     Active Substance: SUCRALFATE
  34. TUMS [Concomitant]
     Active Substance: CALCIUM CARBONATE
  35. SIMVASTATIN. [Concomitant]
     Active Substance: SIMVASTATIN
  36. NEXIUM [Suspect]
     Active Substance: ESOMEPRAZOLE MAGNESIUM
     Route: 048
     Dates: start: 2003, end: 2016
  37. COREG [Concomitant]
     Active Substance: CARVEDILOL
  38. MAG-OX [Concomitant]
     Active Substance: MAGNESIUM OXIDE
  39. AMLODIPINE BESYLATE. [Concomitant]
     Active Substance: AMLODIPINE BESYLATE
  40. NOVOLIN [Concomitant]
     Active Substance: INSULIN HUMAN
  41. TRAMADOL. [Concomitant]
     Active Substance: TRAMADOL
  42. DOXAZOSIN [Concomitant]
     Active Substance: DOXAZOSIN\DOXAZOSIN MESYLATE
  43. ACIPHEX [Suspect]
     Active Substance: RABEPRAZOLE SODIUM
     Route: 065
     Dates: start: 2002, end: 2015
  44. PROTONIX [Suspect]
     Active Substance: PANTOPRAZOLE SODIUM
     Route: 065
     Dates: start: 20070629
  45. PROTONIX [Suspect]
     Active Substance: PANTOPRAZOLE SODIUM
     Route: 065
     Dates: start: 20050208, end: 20071002
  46. DIGOXIN. [Concomitant]
     Active Substance: DIGOXIN
  47. TAMSULOSIN [Concomitant]
     Active Substance: TAMSULOSIN
  48. MELOXICAM. [Concomitant]
     Active Substance: MELOXICAM
  49. TRAMADOL. [Concomitant]
     Active Substance: TRAMADOL

REACTIONS (4)
  - Renal failure [Not Recovered/Not Resolved]
  - Chronic kidney disease [Not Recovered/Not Resolved]
  - End stage renal disease [Unknown]
  - Nephrogenic anaemia [Unknown]

NARRATIVE: CASE EVENT DATE: 20111215
